FAERS Safety Report 9371981 (Version 1)
Quarter: 2013Q2

REPORT INFORMATION
  Report Type: Report from Study
  Country: US (occurrence: US)
  Receive Date: 20130627
  Receipt Date: 20130627
  Transmission Date: 20140414
  Serious: Yes (Other)
  Sender: FDA-Public Use
  Company Number: US-MYLANLABS-2012S1011622

PATIENT
  Age: 24 Year
  Sex: Male
  Weight: 66.23 kg

DRUGS (14)
  1. CLOZAPINE TABLETS [Suspect]
     Indication: SCHIZOAFFECTIVE DISORDER
     Route: 048
     Dates: start: 20120324, end: 20120525
  2. CLOZAPINE TABLETS [Suspect]
     Indication: BIPOLAR DISORDER
     Route: 048
     Dates: start: 20120324, end: 20120525
  3. CLOZAPINE TABLETS [Suspect]
     Indication: PERSONALITY DISORDER
     Route: 048
     Dates: start: 20120324, end: 20120525
  4. CLOZAPINE TABLETS [Suspect]
     Indication: SCHIZOAFFECTIVE DISORDER
     Route: 048
     Dates: start: 20120324, end: 20120525
  5. CLOZAPINE TABLETS [Suspect]
     Indication: BIPOLAR DISORDER
     Route: 048
     Dates: start: 20120324, end: 20120525
  6. CLOZAPINE TABLETS [Suspect]
     Indication: PERSONALITY DISORDER
     Route: 048
     Dates: start: 20120324, end: 20120525
  7. CLOZAPINE TABLETS [Suspect]
     Indication: SCHIZOAFFECTIVE DISORDER
     Route: 048
     Dates: start: 20120531, end: 201206
  8. CLOZAPINE TABLETS [Suspect]
     Indication: BIPOLAR DISORDER
     Route: 048
     Dates: start: 20120531, end: 201206
  9. CLOZAPINE TABLETS [Suspect]
     Indication: PERSONALITY DISORDER
     Route: 048
     Dates: start: 20120531, end: 201206
  10. CLOZAPINE TABLETS [Suspect]
     Indication: SCHIZOAFFECTIVE DISORDER
     Route: 048
     Dates: start: 201206, end: 20120606
  11. CLOZAPINE TABLETS [Suspect]
     Indication: BIPOLAR DISORDER
     Route: 048
     Dates: start: 201206, end: 20120606
  12. CLOZAPINE TABLETS [Suspect]
     Indication: PERSONALITY DISORDER
     Route: 048
     Dates: start: 201206, end: 20120606
  13. DEPAKOTE [Concomitant]
  14. HYDROXYZINE [Concomitant]

REACTIONS (1)
  - Granulocytopenia [Recovered/Resolved]
